FAERS Safety Report 23656876 (Version 1)
Quarter: 2024Q1

REPORT INFORMATION
  Report Type: Spontaneous
  Country: AU (occurrence: AU)
  Receive Date: 20240321
  Receipt Date: 20240321
  Transmission Date: 20240409
  Serious: Yes (Death, Hospitalization)
  Sender: FDA-Public Use
  Company Number: AU-JNJFOC-20240348287

PATIENT
  Age: 64 Year
  Sex: Male

DRUGS (1)
  1. REMICADE [Suspect]
     Active Substance: INFLIXIMAB
     Indication: Enterocolitis
     Route: 041

REACTIONS (9)
  - Death [Fatal]
  - Gastrointestinal haemorrhage [Unknown]
  - Acute kidney injury [Unknown]
  - Malnutrition [Unknown]
  - Thrombosis [Unknown]
  - Fungal sepsis [Unknown]
  - Klebsiella sepsis [Unknown]
  - Cytomegalovirus infection [Unknown]
  - Therapeutic response decreased [Unknown]
